FAERS Safety Report 9231078 (Version 2)
Quarter: 2013Q2

REPORT INFORMATION
  Report Type: Report from Study
  Country: ES (occurrence: ES)
  Receive Date: 20130415
  Receipt Date: 20130506
  Transmission Date: 20140414
  Serious: Yes (Death, Other)
  Sender: FDA-Public Use
  Company Number: ES-ROCHE-1212589

PATIENT
  Sex: 0

DRUGS (5)
  1. TICLOPIDINE [Suspect]
     Indication: ISCHAEMIC STROKE
     Route: 065
  2. ALTEPLASE [Suspect]
     Indication: ISCHAEMIC STROKE
     Route: 042
  3. ASPIRIN [Suspect]
     Indication: ISCHAEMIC STROKE
     Route: 065
  4. DIPYRIDAMOLE [Suspect]
     Indication: ISCHAEMIC STROKE
     Route: 065
  5. TRIFLUSAL [Suspect]
     Indication: ISCHAEMIC STROKE
     Route: 065

REACTIONS (5)
  - Death [Fatal]
  - Haemorrhage intracranial [Unknown]
  - Haemorrhage intracranial [Unknown]
  - Haemorrhagic infarction [Unknown]
  - Cerebral haemorrhage [Unknown]
